FAERS Safety Report 9687075 (Version 3)
Quarter: 2013Q4

REPORT INFORMATION
  Report Type: Spontaneous
  Country: US (occurrence: US)
  Receive Date: 20131113
  Receipt Date: 20131115
  Transmission Date: 20140711
  Serious: Yes (Hospitalization)
  Sender: FDA-Public Use
  Company Number: US-B.I. PHARMACEUTICALS,INC./RIDGEFIELD-2013-BI-22831BP

PATIENT
  Age: 65 Year
  Sex: Male
  Weight: 71.67 kg

DRUGS (7)
  1. PRADAXA [Suspect]
     Indication: ATRIAL FIBRILLATION
     Dosage: 300 MG
     Route: 048
     Dates: start: 20110930, end: 20111003
  2. SPIRONOLACTONE [Concomitant]
     Dates: start: 20061127
  3. ISOSORBIDE [Concomitant]
     Dates: start: 20070907
  4. CARVEDILOL [Concomitant]
     Dates: start: 20070702
  5. SIMVASTATIN [Concomitant]
     Dates: start: 20080618
  6. GLYBURIDE [Concomitant]
     Dates: start: 20100319
  7. FUROSEMIDE [Concomitant]

REACTIONS (1)
  - Gastrointestinal haemorrhage [Unknown]
